FAERS Safety Report 16501417 (Version 1)
Quarter: 2019Q3

REPORT INFORMATION
  Report Type: Spontaneous
  Country: US (occurrence: US)
  Receive Date: 20190628
  Receipt Date: 20190628
  Transmission Date: 20191004
  Serious: No
  Sender: FDA-Public Use
  Company Number: None

PATIENT
  Age: 50 Year
  Sex: Female

DRUGS (2)
  1. YEGABI SCALP RELIEF TREATMENT SET [Suspect]
     Active Substance: HERBALS
  2. YEGABI DOUBLE CHIN AND BUFFALO HUMP REDUCTION TREATMENT SET [Suspect]
     Active Substance: HERBALS

REACTIONS (2)
  - Rash [None]
  - Haemorrhage [None]

NARRATIVE: CASE EVENT DATE: 20190330
